FAERS Safety Report 12775441 (Version 1)
Quarter: 2016Q3

REPORT INFORMATION
  Report Type: Spontaneous
  Country: US (occurrence: US)
  Receive Date: 20160920
  Receipt Date: 20160920
  Transmission Date: 20161109
  Serious: Yes (Hospitalization)
  Sender: FDA-Public Use
  Company Number: None

PATIENT
  Age: 42 Year
  Sex: Female
  Weight: 68 kg

DRUGS (5)
  1. PEG-L-ASPARAGINASE [Suspect]
     Active Substance: PEGASPARGASE
     Dates: end: 20160823
  2. CYCLOPHOSPHAMIDE. [Suspect]
     Active Substance: CYCLOPHOSPHAMIDE
     Dates: end: 20160913
  3. CYTARABINE. [Suspect]
     Active Substance: CYTARABINE
     Dates: end: 20160916
  4. MERCAPTOPURINE. [Suspect]
     Active Substance: MERCAPTOPURINE
     Dates: end: 20160917
  5. METHOTREXATE. [Suspect]
     Active Substance: METHOTREXATE
     Dates: end: 20160830

REACTIONS (10)
  - Rhinorrhoea [None]
  - Febrile neutropenia [None]
  - Pneumonia [None]
  - Constipation [None]
  - Urinary tract infection [None]
  - Nausea [None]
  - Haemoglobin decreased [None]
  - Abdominal pain [None]
  - Gastrointestinal disorder [None]
  - Vomiting [None]

NARRATIVE: CASE EVENT DATE: 20160918
